FAERS Safety Report 14685669 (Version 1)
Quarter: 2018Q1

REPORT INFORMATION
  Report Type: Spontaneous
  Country: FR (occurrence: FR)
  Receive Date: 20180327
  Receipt Date: 20180327
  Transmission Date: 20180509
  Serious: Yes (Hospitalization)
  Sender: FDA-Public Use
  Company Number: FR-PFIZER INC-2018117416

PATIENT
  Age: 58 Year
  Sex: Male
  Weight: 70 kg

DRUGS (8)
  1. DOXORUBICINE TEVA [Suspect]
     Active Substance: DOXORUBICIN
     Indication: T-CELL LYMPHOMA
     Dosage: 68 MG, UNK
     Route: 042
     Dates: start: 20160726, end: 20160726
  2. ETOPOSIDE TEVA [Suspect]
     Active Substance: ETOPOSIDE
     Indication: T-CELL LYMPHOMA
     Dosage: 140 MG, UNK
     Route: 042
     Dates: start: 20160726, end: 20160728
  3. CORTANCYL [Concomitant]
     Active Substance: PREDNISONE
     Indication: T-CELL LYMPHOMA
     Dosage: 113.4 MG, UNK
     Route: 048
     Dates: start: 20160729, end: 20160730
  4. VINCRISTINE SULFATE. [Suspect]
     Active Substance: VINCRISTINE SULFATE
     Indication: T-CELL LYMPHOMA
     Dosage: 2 MG, UNK
     Route: 042
     Dates: start: 20160726, end: 20160726
  5. ENDOXAN /00021101/ [Suspect]
     Active Substance: CYCLOPHOSPHAMIDE
     Indication: T-CELL LYMPHOMA
     Dosage: 1420 MG, UNK
     Route: 042
     Dates: start: 20160726, end: 20160726
  6. SOLU-MEDROL [Concomitant]
     Active Substance: METHYLPREDNISOLONE SODIUM SUCCINATE
     Indication: T-CELL LYMPHOMA
     Dosage: 93.17 MG, UNK
     Route: 042
     Dates: start: 20160726, end: 20160728
  7. METHOTREXATE BIODIM [Suspect]
     Active Substance: METHOTREXATE
     Indication: T-CELL LYMPHOMA
     Dosage: 15 MG, UNK
     Route: 024
     Dates: start: 20160726, end: 20160726
  8. ZOPHREN /00955302/ [Concomitant]
     Active Substance: ONDANSETRON
     Indication: T-CELL LYMPHOMA
     Dosage: 8 MG, UNK
     Route: 042
     Dates: start: 20160726, end: 20160728

REACTIONS (2)
  - Febrile bone marrow aplasia [Not Recovered/Not Resolved]
  - Pyrexia [Not Recovered/Not Resolved]

NARRATIVE: CASE EVENT DATE: 20160803
